FAERS Safety Report 11838611 (Version 1)
Quarter: 2015Q4

REPORT INFORMATION
  Report Type: Spontaneous
  Country: US (occurrence: US)
  Receive Date: 20151215
  Receipt Date: 20151215
  Transmission Date: 20160305
  Serious: No
  Sender: FDA-Public Use
  Company Number: US-SA-2015SA069164

PATIENT
  Sex: Female

DRUGS (2)
  1. IODINE (131 I) [Concomitant]
     Active Substance: SODIUM IODIDE I-131
     Dates: start: 201505
  2. THYROGEN [Suspect]
     Active Substance: THYROTROPIN ALFA
     Route: 030
     Dates: start: 20150505, end: 20150506

REACTIONS (9)
  - Asthenia [Unknown]
  - Nausea [Unknown]
  - Paraesthesia [Unknown]
  - Hot flush [Unknown]
  - Weight increased [Unknown]
  - Malaise [Unknown]
  - Headache [Unknown]
  - Hypoaesthesia [Unknown]
  - Alopecia [Unknown]

NARRATIVE: CASE EVENT DATE: 201505
